FAERS Safety Report 6464949-0 (Version None)
Quarter: 2009Q4

REPORT INFORMATION
  Report Type: 
  Country: None (occurrence: None)
  Receive Date: 20091201
  Receipt Date: 20091125
  Transmission Date: 20100525
  Serious: Yes (Life-Threatening, Hospitalization, Other)
  Sender: FDA-Public Use
  Company Number: NL-BRISTOL-MYERS SQUIBB COMPANY-14869598

PATIENT
  Age: 56 Year
  Sex: Male
  Weight: 60 kg

DRUGS (7)
  1. CETUXIMAB [Suspect]
     Indication: HEAD AND NECK CANCER
     Route: 042
     Dates: start: 20090930, end: 20091006
  2. CISPLATIN [Suspect]
     Indication: HEAD AND NECK CANCER
     Route: 042
     Dates: start: 20090930
  3. TAXOTERE [Suspect]
     Indication: HEAD AND NECK CANCER
     Route: 042
     Dates: start: 20090930
  4. FLUOROURACIL [Suspect]
     Indication: HEAD AND NECK CANCER
     Route: 042
     Dates: start: 20090930, end: 20091004
  5. APREPITANT [Concomitant]
     Indication: NAUSEA
     Route: 048
     Dates: start: 20091001, end: 20091008
  6. METOCLOPRAMIDE [Concomitant]
     Indication: NAUSEA
     Route: 048
     Dates: start: 20091003, end: 20091008
  7. CIPROFLOXACIN [Concomitant]
     Indication: ANTIBIOTIC PROPHYLAXIS
     Route: 048
     Dates: start: 20091005, end: 20091008

REACTIONS (1)
  - DIVERTICULAR PERFORATION [None]
